FAERS Safety Report 15431974 (Version 1)
Quarter: 2018Q3

REPORT INFORMATION
  Report Type: Not Available
  Country: US (occurrence: US)
  Receive Date: 20180926
  Receipt Date: 20180926
  Transmission Date: 20181010
  Serious: No
  Sender: FDA-Public Use
  Company Number: US-NEUROCRINE BIOSCIENCES INC.-2018NBI02746

PATIENT
  Sex: Male

DRUGS (8)
  1. CYMBALTA [Concomitant]
     Active Substance: DULOXETINE HYDROCHLORIDE
  2. GABAPENTIN. [Concomitant]
     Active Substance: GABAPENTIN
  3. INGREZZA [Suspect]
     Active Substance: VALBENAZINE
     Route: 048
  4. INGREZZA [Suspect]
     Active Substance: VALBENAZINE
     Indication: TARDIVE DYSKINESIA
     Route: 048
     Dates: start: 201801
  5. RISPERIDONE. [Concomitant]
     Active Substance: RISPERIDONE
     Dosage: UP TO 8 MG DAILY
  6. XANAX [Concomitant]
     Active Substance: ALPRAZOLAM
  7. LAMICTAL [Concomitant]
     Active Substance: LAMOTRIGINE
  8. TRAZODONE [Concomitant]
     Active Substance: TRAZODONE HYDROCHLORIDE
     Dosage: AT BEDTIME

REACTIONS (1)
  - Drug effect decreased [None]

NARRATIVE: CASE EVENT DATE: 2018
